FAERS Safety Report 8414399-2 (Version None)
Quarter: 2012Q2

REPORT INFORMATION
  Report Type: 
  Country: None (occurrence: None)
  Receive Date: 20120605
  Receipt Date: 20120524
  Transmission Date: 20120825
  Serious: Yes (Hospitalization)
  Sender: FDA-Public Use
  Company Number: IE-BAXTER-2012BAX006838

PATIENT
  Sex: Female

DRUGS (16)
  1. CALCICHEW D3 FORTE [Concomitant]
     Indication: RHEUMATOID ARTHRITIS
     Route: 048
  2. DELTACORTRIL [Concomitant]
     Indication: RHEUMATOID ARTHRITIS
     Route: 048
  3. SODIUM CHLORIDE INTRAVENOUS INFUSION BP 0.9% W/V [Suspect]
     Route: 042
     Dates: start: 20120517
  4. METHOTREXATE [Concomitant]
     Indication: RHEUMATOID ARTHRITIS
     Route: 048
  5. SPASMONAL [Concomitant]
     Indication: RHEUMATOID ARTHRITIS
     Route: 048
  6. DICLOFENAC SODIUM [Concomitant]
     Indication: PAIN
     Route: 048
  7. LOMOTIL [Concomitant]
     Dosage: AS NEEDED
     Route: 048
  8. DICLOFENAC SODIUM [Concomitant]
     Dosage: AS NEEDED
     Route: 061
  9. NEXIUM [Concomitant]
     Route: 048
  10. FLUCLOXACILLIN [Suspect]
     Route: 042
     Dates: start: 20120517
  11. ENBREL [Concomitant]
     Route: 058
  12. ACTRAPID [Concomitant]
     Indication: DIABETES MELLITUS
     Dosage: AS PER BSL
     Route: 058
  13. LYRICA [Concomitant]
     Indication: PAIN
     Route: 048
  14. FOLIC ACID [Concomitant]
     Indication: RHEUMATOID ARTHRITIS
     Route: 048
  15. LANTUS [Concomitant]
     Indication: DIABETES MELLITUS
     Dosage: AS PER BSL
     Route: 058
  16. MICARDIS [Concomitant]
     Route: 048

REACTIONS (4)
  - NAUSEA [None]
  - VOMITING [None]
  - EATING DISORDER [None]
  - MALAISE [None]
